FAERS Safety Report 5264169-1 (Version None)
Quarter: 2007Q1

REPORT INFORMATION
  Report Type: 
  Country: None (occurrence: None)
  Receive Date: 20070313
  Receipt Date: 20070307
  Transmission Date: 20070707
  Serious: Yes (Other)
  Sender: FDA-Public Use
  Company Number: DE-BOEHRINGER INGELHEIM PHARMACEUTICALS, INC.-2007-DE-01396DE

PATIENT

DRUGS (1)
  1. ALNA OCAS [Suspect]

REACTIONS (1)
  - DYSPNOEA [None]
